FAERS Safety Report 6189331-5 (Version None)
Quarter: 2009Q2

REPORT INFORMATION
  Report Type: 
  Country: None (occurrence: None)
  Receive Date: 20090512
  Receipt Date: 20090429
  Transmission Date: 20091009
  Serious: Yes (Hospitalization)
  Sender: FDA-Public Use
  Company Number: SPV1-2009-00779

PATIENT
  Age: 66 Year
  Sex: Male
  Weight: 29.9 kg

DRUGS (19)
  1. FOSRENOL [Suspect]
     Indication: HYPERPHOSPHATAEMIA
     Dosage: 500 MG, 1X/DAY: QD, ORAL, 500 MG, 3X/DAY: TID, ORAL, 1000 MG, 3X/DAY: TID, ORAL
     Route: 048
     Dates: start: 20090310, end: 20090317
  2. FOSRENOL [Suspect]
     Indication: HYPERPHOSPHATAEMIA
     Dosage: 500 MG, 1X/DAY: QD, ORAL, 500 MG, 3X/DAY: TID, ORAL, 1000 MG, 3X/DAY: TID, ORAL
     Route: 048
     Dates: start: 20090317, end: 20090408
  3. FOSRENOL [Suspect]
     Indication: HYPERPHOSPHATAEMIA
     Dosage: 500 MG, 1X/DAY: QD, ORAL, 500 MG, 3X/DAY: TID, ORAL, 1000 MG, 3X/DAY: TID, ORAL
     Route: 048
     Dates: start: 20090425, end: 20090426
  4. ISOSORBIDE (ISOSORBIDE) [Concomitant]
  5. COREG [Concomitant]
  6. COZAAR [Concomitant]
  7. LIPITOR [Concomitant]
  8. SENSIPAR [Concomitant]
  9. VITAMIN B1 TAB [Concomitant]
  10. WARFARIN SODIUM [Concomitant]
  11. COUMADIN [Concomitant]
  12. LEXAPRO [Concomitant]
  13. ACETAMINOPHEN [Concomitant]
  14. BENADRYL [Concomitant]
  15. PHOSLO [Concomitant]
  16. RENAGEL [Concomitant]
  17. HUMULIN 70/30   (INSULIN HUMAN, INSULIN HUMAN INJECTION, ISOPHANE) [Concomitant]
  18. LYRICA [Concomitant]
  19. NEPHPLEX RX  (ASCORBIC ACID, VITAMIN B-KOMPLEX STANDARD) [Concomitant]

REACTIONS (5)
  - DIARRHOEA [None]
  - DIZZINESS [None]
  - HEART RATE INCREASED [None]
  - LOSS OF CONSCIOUSNESS [None]
  - VOMITING [None]
